FAERS Safety Report 13229604 (Version 1)
Quarter: 2017Q1

REPORT INFORMATION
  Report Type: Spontaneous
  Country: IN (occurrence: IN)
  Receive Date: 20170214
  Receipt Date: 20170214
  Transmission Date: 20170428
  Serious: Yes (Other)
  Sender: FDA-Public Use
  Company Number: IN-DRREDDYS-USA/IND/17/0086988

PATIENT
  Age: 32 Month
  Sex: Male

DRUGS (2)
  1. TOPOTECAN HYDROCHLORIDE FOR INJECTION [Suspect]
     Active Substance: TOPOTECAN HYDROCHLORIDE
     Indication: CONGENITAL RETINOBLASTOMA
     Dosage: VIA CATHETERISATION
     Route: 013
  2. MELPHALAN [Suspect]
     Active Substance: MELPHALAN
     Indication: CONGENITAL RETINOBLASTOMA
     Dosage: VIA CATHETERISATION
     Route: 013

REACTIONS (1)
  - Vitreous haemorrhage [Unknown]
